FAERS Safety Report 25101524 (Version 1)
Quarter: 2025Q1

REPORT INFORMATION
  Report Type: Spontaneous
  Country: US (occurrence: US)
  Receive Date: 20250320
  Receipt Date: 20250320
  Transmission Date: 20250409
  Serious: Yes (Death, Hospitalization, Other)
  Sender: AMGEN
  Company Number: US-AMGEN-USASP2025050826

PATIENT
  Age: 79 Year
  Sex: Female

DRUGS (10)
  1. PREDNISONE [Suspect]
     Active Substance: PREDNISONE
     Indication: Acute lymphocytic leukaemia
     Route: 065
     Dates: start: 2016, end: 201611
  2. DASATINIB [Suspect]
     Active Substance: DASATINIB
     Indication: Acute lymphocytic leukaemia
     Dosage: 100 MILLIGRAM, QD
     Route: 065
     Dates: start: 201604
  3. DASATINIB [Suspect]
     Active Substance: DASATINIB
     Dosage: 50 MILLIGRAM, QD
     Route: 065
  4. DASATINIB [Suspect]
     Active Substance: DASATINIB
     Dosage: 100 MILLIGRAM, QD
     Route: 065
     Dates: end: 201903
  5. NILOTINIB [Suspect]
     Active Substance: NILOTINIB
     Indication: Acute lymphocytic leukaemia recurrent
     Dosage: 400 MILLIGRAM, BID
     Route: 065
     Dates: start: 201903, end: 202201
  6. BOSUTINIB [Suspect]
     Active Substance: BOSUTINIB
     Indication: Acute lymphocytic leukaemia recurrent
     Dosage: 400 MILLIGRAM, QD
     Route: 065
     Dates: start: 202201
  7. BOSUTINIB [Suspect]
     Active Substance: BOSUTINIB
     Dosage: 200 MILLIGRAM, QD
     Route: 065
  8. VINCRISTINE [Concomitant]
     Active Substance: VINCRISTINE
     Indication: Acute lymphocytic leukaemia
     Route: 065
     Dates: start: 2016, end: 201611
  9. METHOTREXATE [Concomitant]
     Active Substance: METHOTREXATE
     Indication: Acute lymphocytic leukaemia
     Route: 065
     Dates: start: 2016, end: 201611
  10. MERCAPTOPURINE [Concomitant]
     Active Substance: MERCAPTOPURINE
     Indication: Acute lymphocytic leukaemia
     Route: 065
     Dates: start: 2016, end: 201611

REACTIONS (9)
  - Illness [Fatal]
  - Acute lymphocytic leukaemia recurrent [Recovered/Resolved]
  - Respiratory failure [Unknown]
  - Cytopenia [Unknown]
  - Arteriosclerosis coronary artery [Unknown]
  - Pneumonia [Unknown]
  - Pneumothorax [Unknown]
  - Pleural effusion [Unknown]
  - Infection [Unknown]

NARRATIVE: CASE EVENT DATE: 20180101
